APPROVED DRUG PRODUCT: LEVONORGESTREL AND ETHINYL ESTRADIOL
Active Ingredient: ETHINYL ESTRADIOL; LEVONORGESTREL
Strength: 0.02MG;0.1MG
Dosage Form/Route: TABLET;ORAL-28
Application: A200245 | Product #001 | TE Code: AB1
Applicant: XIROMED LLC
Approved: Oct 9, 2013 | RLD: No | RS: No | Type: RX